FAERS Safety Report 7201438-X (Version None)
Quarter: 2010Q4

REPORT INFORMATION
  Report Type: 
  Country: None (occurrence: None)
  Receive Date: 20101227
  Receipt Date: 20101227
  Transmission Date: 20110411
  Serious: Yes (Life-Threatening, Hospitalization)
  Sender: FDA-Public Use
  Company Number: None

PATIENT
  Age: 31 Year
  Sex: Female
  Weight: 122.4712 kg

DRUGS (1)
  1. TRAMADOL HCL [Suspect]
     Indication: HYPERSENSITIVITY
     Dosage: 1 TAB A DAY 4-6 HOURS PO
     Route: 048
     Dates: start: 20101223, end: 20101223

REACTIONS (3)
  - HYPERSENSITIVITY [None]
  - RASH PRURITIC [None]
  - UNEVALUABLE EVENT [None]
